FAERS Safety Report 6206362-7 (Version None)
Quarter: 2009Q2

REPORT INFORMATION
  Report Type: 
  Country: None (occurrence: None)
  Receive Date: 20090526
  Receipt Date: 20090514
  Transmission Date: 20091009
  Serious: Yes (Other)
  Sender: FDA-Public Use
  Company Number: 2009005557

PATIENT
  Age: 72 Year
  Sex: Female

DRUGS (2)
  1. TRISENOX [Suspect]
     Indication: MYELODYSPLASTIC SYNDROME
     Dosage: INTRAVENOUS DRIP
     Route: 041
  2. CYTARABINE [Concomitant]

REACTIONS (12)
  - ANAL FISSURE [None]
  - CATHETER SITE PAIN [None]
  - CONSTIPATION [None]
  - DIARRHOEA [None]
  - FLANK PAIN [None]
  - GINGIVAL HYPERTROPHY [None]
  - HAEMORRHOIDS [None]
  - PROCTALGIA [None]
  - PRURITUS [None]
  - SPLENOMEGALY [None]
  - URINARY TRACT INFECTION [None]
  - WEIGHT DECREASED [None]
